FAERS Safety Report 26217994 (Version 1)
Quarter: 2025Q4

REPORT INFORMATION
  Report Type: Report from Study
  Country: US (occurrence: US)
  Receive Date: 20251231
  Receipt Date: 20251231
  Transmission Date: 20260118
  Serious: Yes (Hospitalization)
  Sender: ABBVIE
  Company Number: US-ABBVIE-6555121

PATIENT
  Age: 76 Year
  Sex: Female
  Weight: 64 kg

DRUGS (1)
  1. RINVOQ [Suspect]
     Active Substance: UPADACITINIB
     Indication: Colitis ulcerative
     Route: 048
     Dates: start: 2022

REACTIONS (10)
  - Clostridium difficile infection [Not Recovered/Not Resolved]
  - Cerebrovascular accident [Recovering/Resolving]
  - Dysstasia [Not Recovered/Not Resolved]
  - COVID-19 [Recovered/Resolved]
  - Blindness unilateral [Recovering/Resolving]
  - Seizure [Recovered/Resolved]
  - Hemiplegia [Recovering/Resolving]
  - Asthenia [Not Recovered/Not Resolved]
  - Loss of personal independence in daily activities [Not Recovered/Not Resolved]
  - Gait inability [Not Recovered/Not Resolved]

NARRATIVE: CASE EVENT DATE: 20251101
